FAERS Safety Report 13997269 (Version 1)
Quarter: 2017Q3

REPORT INFORMATION
  Report Type: Spontaneous
  Country: US (occurrence: US)
  Receive Date: 20170921
  Receipt Date: 20170921
  Transmission Date: 20171128
  Serious: No
  Sender: FDA-Public Use
  Company Number: US-BAUSCH-BL-2016-026904

PATIENT
  Age: 87 Year
  Sex: Female

DRUGS (2)
  1. PREDNISOLONE SODIUM PHOSPHATE OPHTHALMIC SOLUTION USP 1% [Suspect]
     Active Substance: PREDNISOLONE SODIUM PHOSPHATE
     Indication: EAR PAIN
  2. PREDNISOLONE SODIUM PHOSPHATE OPHTHALMIC SOLUTION USP 1% [Suspect]
     Active Substance: PREDNISOLONE SODIUM PHOSPHATE
     Indication: PRURITUS
     Route: 001
     Dates: start: 201608, end: 201610

REACTIONS (2)
  - Drug ineffective [Unknown]
  - Off label use [Unknown]
